FAERS Safety Report 16851100 (Version 2)
Quarter: 2020Q4

REPORT INFORMATION
  Report Type: Spontaneous
  Country: None (occurrence: US)
  Receive Date: 20190925
  Receipt Date: 20201013
  Transmission Date: 20210113
  Serious: No
  Sender: FDA-Public Use
  Company Number: US-ENDO PHARMACEUTICALS INC-2019-106133

PATIENT
  Age: 76 Year
  Sex: Female

DRUGS (4)
  1. CHOLESTYRAMINE. [Suspect]
     Active Substance: CHOLESTYRAMINE
     Dosage: 4 G, UNKNOWN
     Route: 048
  2. VITAMINS WITH MINERALS [Concomitant]
     Active Substance: MINERALS\VITAMINS
     Indication: PRODUCT USED FOR UNKNOWN INDICATION
  3. MOBIC [Concomitant]
     Active Substance: MELOXICAM
     Indication: PRODUCT USED FOR UNKNOWN INDICATION
  4. CHOLESTYRAMINE. [Suspect]
     Active Substance: CHOLESTYRAMINE
     Indication: BLOOD CHOLESTEROL ABNORMAL
     Dosage: 4 G, BID
     Route: 048
     Dates: start: 2019

REACTIONS (7)
  - Product odour abnormal [Not Recovered/Not Resolved]
  - Illness [Not Recovered/Not Resolved]
  - Product substitution issue [Not Recovered/Not Resolved]
  - Product taste abnormal [Not Recovered/Not Resolved]
  - Abdominal discomfort [Unknown]
  - Headache [Unknown]
  - Product physical issue [Not Recovered/Not Resolved]

NARRATIVE: CASE EVENT DATE: 20190630
